FAERS Safety Report 8070110 (Version 5)
Quarter: 2012Q4

REPORT INFORMATION
  Report Type: 
  Country: US (occurrence: US)
  Receive Date: 20110804
  Receipt Date: 20121101
  Transmission Date: 20130627
  Serious: Yes (Hospitalization, Other)
  Sender: FDA-Public Use
  Company Number: US-ASTRAZENECA-2011SE44569

PATIENT
  Age: 84 Year
  Sex: Female
  Weight: 78 kg

DRUGS (18)
  1. ARIMIDEX [Suspect]
     Route: 048
     Dates: start: 2005
  2. SEROQUEL [Suspect]
     Indication: BIPOLAR DISORDER
     Route: 048
  3. SEROQUEL [Suspect]
     Indication: DEPRESSION
     Route: 048
  4. SEROQUEL [Suspect]
     Indication: SLEEP DISORDER
     Route: 048
  5. LYRICA [Concomitant]
     Indication: ARTHRALGIA
     Dates: start: 201101
  6. XALATAN [Concomitant]
     Dosage: DAILY IN BOTH EYES
  7. VITAMIN B12 [Concomitant]
  8. ASCORBIC ACID [Concomitant]
  9. MULTIVITAMINS [Concomitant]
  10. PYRIDOXINE [Concomitant]
  11. SARNA [Concomitant]
     Indication: PRURITUS
     Dosage: TWICE A DAY
  12. LORAZEPAM [Concomitant]
     Dosage: 0.5 MG EVERY SIX HOURS, AS NEEDED
  13. ATARAX [Concomitant]
  14. CALCIUM CARBONATE WITH VITAMIN D [Concomitant]
  15. LASIX [Concomitant]
  16. POTASSIUM CHLORIDE [Concomitant]
  17. MAGNESIUM OXIDE [Concomitant]
  18. MYLANTA [Concomitant]
     Dosage: AS NEEDED

REACTIONS (19)
  - Breast cancer [Unknown]
  - Hypomagnesaemia [Unknown]
  - Hypokalaemia [Unknown]
  - Hypothyroidism [Unknown]
  - Cellulitis [Unknown]
  - Oedema peripheral [Unknown]
  - Depression [Unknown]
  - Rash [Not Recovered/Not Resolved]
  - Dermatitis psoriasiform [Unknown]
  - Epidermal necrosis [Unknown]
  - Insomnia [Unknown]
  - Tardive dyskinesia [Recovered/Resolved]
  - Hypoaesthesia [Unknown]
  - Anxiety [Unknown]
  - Logorrhoea [Unknown]
  - Arthralgia [Unknown]
  - Pruritus [Unknown]
  - Off label use [Unknown]
  - Drug dose omission [Unknown]
